FAERS Safety Report 9305029 (Version 2)
Quarter: 2013Q2

REPORT INFORMATION
  Report Type: Spontaneous
  Country: US (occurrence: None)
  Receive Date: 20130521
  Receipt Date: 20130531
  Transmission Date: 20140414
  Serious: Yes (Other)
  Sender: FDA-Public Use
  Company Number: JPI-P-031720

PATIENT
  Age: 33 Year
  Sex: Female
  Weight: 87.54 kg

DRUGS (3)
  1. XYREM (500 MILLIGRAM/ MILLILITERS, SOLUTION) (SODIUM OXYBATE) [Suspect]
     Indication: INSOMNIA
     Dosage: 7 GM (3.5 GM,2 IN 1 D)
     Route: 048
     Dates: start: 20130417, end: 201304
  2. PROZAC [Concomitant]
  3. LEVAQUIN [Concomitant]

REACTIONS (7)
  - Mood altered [None]
  - Bronchitis [None]
  - Nausea [None]
  - Vomiting [None]
  - Diarrhoea [None]
  - Insomnia [None]
  - Pollakiuria [None]
